FAERS Safety Report 4347450-X (Version None)
Quarter: 2004Q2

REPORT INFORMATION
  Report Type: 
  Country: None (occurrence: None)
  Receive Date: 20040422
  Receipt Date: 20040402
  Transmission Date: 20050107
  Serious: Yes (Hospitalization, Other)
  Sender: FDA-Public Use
  Company Number: USA031255388

PATIENT
  Age: 75 Year
  Sex: Female

DRUGS (8)
  1. FORTEO [Suspect]
     Indication: OSTEOPOROSIS
     Dosage: 20 UG/1 DAY
     Dates: start: 20030601, end: 20031221
  2. PROZAC [Suspect]
  3. AVANZA (MIRTAZAPINE) [Concomitant]
  4. ACTONEL [Concomitant]
  5. CALCIUM [Concomitant]
  6. PREVACID [Concomitant]
  7. LORTAB [Concomitant]
  8. DILTIAZEM [Concomitant]

REACTIONS (3)
  - COUGH [None]
  - GASTROENTERITIS [None]
  - VIRAL INFECTION [None]
